FAERS Safety Report 17591971 (Version 1)
Quarter: 2020Q1

REPORT INFORMATION
  Report Type: Spontaneous
  Country: NL (occurrence: NL)
  Receive Date: 20200327
  Receipt Date: 20200327
  Transmission Date: 20200409
  Serious: Yes (Hospitalization, Other)
  Sender: FDA-Public Use
  Company Number: NL-BIOVITRUM-2020NL1471

PATIENT
  Age: 51 Year
  Sex: Male
  Weight: 75 kg

DRUGS (5)
  1. ORFADIN [Suspect]
     Active Substance: NITISINONE
     Indication: ALKAPTONURIA
     Dosage: 1 DD 2MG
     Dates: start: 2018
  2. VENTOLIN [Concomitant]
     Active Substance: ALBUTEROL SULFATE
     Dosage: INHALATIEPOEDER, 200 ?G/DOSIS (MICROGRAM PER DOSIS)
  3. FLUTICASON/UMECLIDINIUM/VILANTEROL [Concomitant]
     Dosage: INHALATIEPOEDER, 92/55/22 ?G/DOSIS (MICROGRAM PER DOSIS)
  4. PARACETAMOL [Concomitant]
     Active Substance: ACETAMINOPHEN
     Dosage: TABLET, 500 MG (MILLIGRAM)
  5. OMEPRAZOL [Concomitant]
     Active Substance: OMEPRAZOLE
     Dosage: MAAGSAPRESISTENTE TABLET, 40 MG (MILLIGRAM)

REACTIONS (2)
  - Femur fracture [Recovering/Resolving]
  - Off label use [Not Recovered/Not Resolved]

NARRATIVE: CASE EVENT DATE: 2018
